FAERS Safety Report 19224597 (Version 1)
Quarter: 2021Q2

REPORT INFORMATION
  Report Type: Spontaneous
  Country: IT (occurrence: IT)
  Receive Date: 20210506
  Receipt Date: 20210506
  Transmission Date: 20210717
  Serious: Yes (Hospitalization)
  Sender: FDA-Public Use
  Company Number: IT-MYLANLABS-2021M1026765

PATIENT
  Age: 25 Year
  Sex: Male

DRUGS (6)
  1. PREGABALIN. [Suspect]
     Active Substance: PREGABALIN
     Indication: POSTOPERATIVE ANALGESIA
  2. METHADONE [Concomitant]
     Active Substance: METHADONE HYDROCHLORIDE
     Indication: POSTOPERATIVE ANALGESIA
     Dosage: STRENGTH: 1 MG/ML; STARTING DOSE OF 5MG IN THE MORNING; GRADUALLY INCREASED BY 5 ...
     Route: 048
     Dates: start: 2019
  3. PREGABALIN. [Suspect]
     Active Substance: PREGABALIN
     Indication: PRODUCT USED FOR UNKNOWN INDICATION
     Dosage: DAILY DOSE OF 900/1500 MG AT THE TIME OF ADMISSION; HIGHEST DOSE TAKEN: 3000 MG/DAY
     Route: 048
     Dates: start: 2018
  4. ETORICOXIB. [Concomitant]
     Active Substance: ETORICOXIB
     Indication: POSTOPERATIVE ANALGESIA
     Route: 065
     Dates: start: 2018
  5. ACETAMINOPHEN. [Concomitant]
     Active Substance: ACETAMINOPHEN
     Indication: POSTOPERATIVE ANALGESIA
     Route: 065
     Dates: start: 2018
  6. METHIONINE [Concomitant]
     Active Substance: METHIONINE
     Indication: POSTOPERATIVE ANALGESIA
     Route: 065
     Dates: start: 2018

REACTIONS (2)
  - Drug withdrawal syndrome [Recovered/Resolved]
  - Drug abuse [Recovered/Resolved]

NARRATIVE: CASE EVENT DATE: 2018
